FAERS Safety Report 23717202 (Version 2)
Quarter: 2024Q2

REPORT INFORMATION
  Report Type: Report from Study
  Country: GB (occurrence: GB)
  Receive Date: 20240408
  Receipt Date: 20240409
  Transmission Date: 20240716
  Serious: Yes (Hospitalization)
  Sender: FDA-Public Use
  Company Number: GB-BAYER-2024A048712

PATIENT
  Age: 72 Year
  Sex: Female

DRUGS (1)
  1. VENTAVIS [Suspect]
     Active Substance: ILOPROST
     Indication: Product used for unknown indication
     Route: 055

REACTIONS (7)
  - Hospitalisation [Unknown]
  - Cough [Unknown]
  - Dizziness [Unknown]
  - Feeling hot [Unknown]
  - Oxygen therapy [Not Recovered/Not Resolved]
  - Tendon rupture [Not Recovered/Not Resolved]
  - Malaise [Unknown]
